FAERS Safety Report 4391121-0 (Version None)
Quarter: 2004Q3

REPORT INFORMATION
  Report Type: 
  Country: None (occurrence: None)
  Receive Date: 20040707
  Receipt Date: 20040701
  Transmission Date: 20050211
  Serious: Yes (Other)
  Sender: FDA-Public Use
  Company Number: JP-ROCHE-372785

PATIENT
  Age: 15 Year
  Sex: Female

DRUGS (3)
  1. TAMIFLU [Suspect]
     Route: 048
     Dates: start: 20040329, end: 20040331
  2. ACETAMINOPHEN [Concomitant]
     Route: 048
  3. MUCOSOLVAN [Concomitant]
     Route: 048

REACTIONS (2)
  - CONVULSION [None]
  - EPILEPSY [None]
